FAERS Safety Report 4411388-X (Version None)
Quarter: 2004Q3

REPORT INFORMATION
  Report Type: 
  Country: None (occurrence: None)
  Receive Date: 20040727
  Receipt Date: 20040714
  Transmission Date: 20050211
  Serious: No
  Sender: FDA-Public Use
  Company Number: 2004AP03734

PATIENT
  Age: 62 Year
  Sex: Male
  Weight: 71 kg

DRUGS (7)
  1. XYLOCAINE [Suspect]
     Indication: LOCAL ANAESTHESIA
     Dosage: 30 ML ONCE
  2. XYLOCAINE [Suspect]
     Indication: LOCAL ANAESTHESIA
     Dosage: 40 MG DAILY
  3. MARCAINE [Suspect]
     Indication: LOCAL ANAESTHESIA
     Dosage: 0.25 % ONCE
  4. DIPRIVAN [Concomitant]
  5. MIDAZOLAM [Concomitant]
  6. FENTANYL CITRATE [Concomitant]
  7. VECURONIUM BROMIDE [Concomitant]

REACTIONS (8)
  - AMNESIA [None]
  - ANAESTHETIC COMPLICATION [None]
  - DEPRESSED LEVEL OF CONSCIOUSNESS [None]
  - DIPLOPIA [None]
  - DRUG TOXICITY [None]
  - MYDRIASIS [None]
  - NYSTAGMUS [None]
  - RESPIRATORY DISORDER [None]
